FAERS Safety Report 19199290 (Version 5)
Quarter: 2022Q2

REPORT INFORMATION
  Report Type: Report from Study
  Country: US (occurrence: US)
  Receive Date: 20210430
  Receipt Date: 20220616
  Transmission Date: 20220721
  Serious: Yes (Death, Other)
  Sender: FDA-Public Use
  Company Number: US-ACADIA PHARMACEUTICALS INC.-ACA-2021-PIM-001330

PATIENT
  Age: 85 Year
  Sex: Male
  Weight: 72 kg

DRUGS (30)
  1. NUPLAZID [Suspect]
     Active Substance: PIMAVANSERIN TARTRATE
     Indication: Parkinson^s disease psychosis
     Dosage: 34 MILLIGRAM
     Route: 048
     Dates: start: 20201201
  2. NUPLAZID [Suspect]
     Active Substance: PIMAVANSERIN TARTRATE
     Indication: Hallucination
     Dosage: 34 MILLIGRAM, QD
     Route: 048
     Dates: start: 20210210
  3. NUPLAZID [Suspect]
     Active Substance: PIMAVANSERIN TARTRATE
     Indication: Delusion
  4. ACETAMINOPHEN [Concomitant]
     Active Substance: ACETAMINOPHEN
     Indication: Pain
     Dosage: 1 SUPPOSITORY, EVERY 4 HOURS
     Route: 054
     Dates: start: 20211228
  5. ACETAMINOPHEN [Concomitant]
     Active Substance: ACETAMINOPHEN
     Indication: Pyrexia
  6. ATRAPRO DERMAL [Concomitant]
     Indication: Wound treatment
     Dosage: UNK
     Route: 061
     Dates: start: 20211213, end: 20211230
  7. BISACODYL [Concomitant]
     Active Substance: BISACODYL
     Indication: Constipation
     Dosage: 1 SUPPOSITORY
     Route: 054
     Dates: start: 20211228
  8. DOCUSATE SODIUM [Concomitant]
     Active Substance: DOCUSATE SODIUM
     Indication: Constipation
     Dosage: 100 MILLIGRAM, QD
     Route: 048
     Dates: start: 20211230
  9. DONEPEZIL [Concomitant]
     Active Substance: DONEPEZIL
     Indication: Dementia Alzheimer^s type
     Dosage: 10 MILLIGRAM, QD
     Route: 048
     Dates: start: 20211213
  10. DULCOLAX (BISACODYL) [Concomitant]
     Active Substance: BISACODYL
     Indication: Constipation
     Dosage: 5 MILLIGRAM, QD
     Route: 048
     Dates: start: 20211213
  11. HYOSCYAMINE [Concomitant]
     Active Substance: HYOSCYAMINE
     Indication: Secretion discharge
     Dosage: 0.125 MG, 1 TABLET EVERY 4 HOURS
     Route: 048
     Dates: start: 20220203
  12. LORAZEPAM [Concomitant]
     Active Substance: LORAZEPAM
     Indication: Anxiety
     Dosage: 0.5 MG, EVERY 4 HOURS
     Route: 060
     Dates: start: 20211228
  13. LORAZEPAM [Concomitant]
     Active Substance: LORAZEPAM
     Indication: Restlessness
     Dosage: 1 MILLIGRAM, EVERY 3 HOURS
     Route: 060
     Dates: start: 20220111
  14. LORAZEPAM [Concomitant]
     Active Substance: LORAZEPAM
     Indication: Seizure
     Dosage: 2 MILLIGRAM
     Route: 060
     Dates: start: 20220111
  15. LORAZEPAM [Concomitant]
     Active Substance: LORAZEPAM
     Indication: Agitation
  16. MELATONIN [Concomitant]
     Active Substance: MELATONIN
     Indication: Insomnia
     Dosage: 3 MILLIGRAM, 1 TABLET BED TIME
     Route: 048
     Dates: start: 20211213
  17. METAMUCIL [Concomitant]
     Active Substance: PLANTAGO SEED
     Indication: Constipation
     Dosage: 2 TABLE SOON, AS NEEDED
     Route: 048
     Dates: start: 20211213
  18. MORPHINE [Concomitant]
     Active Substance: MORPHINE
     Indication: Pain
     Dosage: 100MG/5 ML, 5 MILLIGRAM, EVERY 4 HOURS
     Route: 060
     Dates: start: 20211228
  19. VITAMINS [Concomitant]
     Active Substance: VITAMINS
     Indication: Supplementation therapy
     Dosage: 1 TABLET DAILY
     Route: 048
     Dates: start: 20211213
  20. REMEDY PHYTOPLEX PROTECTANT Z GUARD [Concomitant]
     Indication: Prophylaxis
     Dosage: 2 TIMES DAILY
     Route: 061
     Dates: start: 20220113
  21. SODIUM CHLORIDE [Concomitant]
     Active Substance: SODIUM CHLORIDE
     Indication: Wound
     Dosage: 3 TIMES A WEEK
     Dates: start: 20220225, end: 20220228
  22. SHIELD [Concomitant]
     Active Substance: ZINC OXIDE
     Indication: Wound treatment
     Dosage: AS NEEDED
     Route: 061
     Dates: start: 20211213, end: 20220224
  23. SHIELD [Concomitant]
     Active Substance: ZINC OXIDE
     Dosage: 3 TIMES A WEEK
     Route: 061
     Dates: start: 20220225, end: 20220228
  24. TAMSULOSIN [Concomitant]
     Active Substance: TAMSULOSIN
     Indication: Benign prostatic hyperplasia
     Dosage: 0.4 MG, DAILY
     Route: 048
     Dates: start: 20211213
  25. TRAZODONE [Concomitant]
     Active Substance: TRAZODONE HYDROCHLORIDE
     Indication: Insomnia
     Dosage: 100 MILLIGRAM, BED TIME
     Route: 048
     Dates: start: 20211213
  26. TYLENOL EXTRA STRENGTH [Concomitant]
     Active Substance: ACETAMINOPHEN
     Indication: Pain
     Dosage: 500 MILLIGRAM, 2 TABLET, EVERY 8 HOURS
     Route: 048
     Dates: start: 20211213
  27. TYLENOL EXTRA STRENGTH [Concomitant]
     Active Substance: ACETAMINOPHEN
     Indication: Pyrexia
  28. VERAPAMIL [Concomitant]
     Active Substance: VERAPAMIL HYDROCHLORIDE
     Indication: Headache
     Dosage: 80 MILLIGRAM, 3 TIMES DAILY
     Route: 048
     Dates: start: 20211213
  29. SODIUM CHLORIDE [Concomitant]
     Active Substance: SODIUM CHLORIDE
     Indication: Wound treatment
     Dosage: AS NEEDED
     Route: 061
     Dates: start: 20211213, end: 20211230
  30. WOUND GEL [Concomitant]
     Active Substance: ALLANTOIN
     Dosage: 2 TIMES A WEEK
     Route: 061
     Dates: start: 20220127, end: 20220224

REACTIONS (3)
  - Death [Fatal]
  - Seizure [Not Recovered/Not Resolved]
  - Fall [Not Recovered/Not Resolved]

NARRATIVE: CASE EVENT DATE: 20220305
